FAERS Safety Report 8595875-9 (Version None)
Quarter: 2012Q3

REPORT INFORMATION
  Report Type: 
  Country: None (occurrence: None)
  Receive Date: 20120815
  Receipt Date: 19931115
  Transmission Date: 20120928
  Serious: Yes (Other)
  Sender: FDA-Public Use
  Company Number: US-ROCHE-1100499

PATIENT
  Age: 35 Year
  Sex: Male

DRUGS (5)
  1. ACTIVASE [Suspect]
     Indication: PRODUCT USED FOR UNKNOWN INDICATION
  2. HEPARIN [Concomitant]
     Dosage: 1000 UNITS PER HOUR
  3. ASPIRIN [Concomitant]
  4. NITRO DRIP [Concomitant]
     Dosage: 110 MCG PER MIN
  5. LOPRESSOR [Concomitant]

REACTIONS (4)
  - VENTRICULAR EXTRASYSTOLES [None]
  - VENTRICULAR TACHYCARDIA [None]
  - BRADYCARDIA [None]
  - ANGINA PECTORIS [None]
